FAERS Safety Report 4392692-0 (Version None)
Quarter: 2004Q3

REPORT INFORMATION
  Report Type: 
  Country: None (occurrence: None)
  Receive Date: 20040702
  Receipt Date: 20040622
  Transmission Date: 20050211
  Serious: Yes (Other)
  Sender: FDA-Public Use
  Company Number: DE-JNJFOC-20040606160

PATIENT
  Age: 13 Year
  Sex: Male

DRUGS (2)
  1. RISPERDAL [Suspect]
     Dosage: 3 MG, IN 1 DAY, ORAL
     Route: 048
  2. CONCERTA [Suspect]
     Indication: ATTENTION DEFICIT/HYPERACTIVITY DISORDER
     Dosage: SEE IMAGE
     Route: 048

REACTIONS (1)
  - TACHYCARDIA [None]
